FAERS Safety Report 26159988 (Version 2)
Quarter: 2025Q4

REPORT INFORMATION
  Report Type: Spontaneous
  Country: PK (occurrence: PK)
  Receive Date: 20251216
  Receipt Date: 20251224
  Transmission Date: 20260118
  Serious: Yes (Other)
  Sender: ALKEM
  Company Number: PK-ALKEM LABORATORIES LIMITED-PK-ALKEM-2025-13359

PATIENT
  Age: 34 Year
  Sex: Male

DRUGS (1)
  1. AMPHETAMINE SULFATE [Suspect]
     Active Substance: AMPHETAMINE SULFATE
     Indication: Product used for unknown indication
     Dosage: UNK
     Route: 065

REACTIONS (12)
  - Suicide attempt [Unknown]
  - Hallucination [Unknown]
  - Substance-induced psychotic disorder [Unknown]
  - Drug abuse [Unknown]
  - Aggression [Unknown]
  - Disorientation [Unknown]
  - Homicide [Unknown]
  - Hypertension [Unknown]
  - Paranoia [Unknown]
  - Toxicity to various agents [Unknown]
  - Tachycardia [Unknown]
  - Treatment noncompliance [Unknown]
